FAERS Safety Report 5715803-0 (Version None)
Quarter: 2008Q2

REPORT INFORMATION
  Report Type: 
  Country: None (occurrence: None)
  Receive Date: 20080424
  Receipt Date: 20080418
  Transmission Date: 20081010
  Serious: Yes (Hospitalization, Other)
  Sender: FDA-Public Use
  Company Number: DE-BRISTOL-MYERS SQUIBB COMPANY-14159073

PATIENT
  Age: 77 Year
  Sex: Female

DRUGS (3)
  1. ERBITUX [Suspect]
     Indication: NEOPLASM MALIGNANT
     Dosage: FIRST INFUSION: 13-MAR-2008 MOST RECENT INFUSION: 13-APR-2008 (4TH INFUSION)
     Route: 042
     Dates: start: 20080313
  2. CARBOPLATIN [Concomitant]
     Indication: NEOPLASM MALIGNANT
     Dosage: 1 DOSAGE FORM = AUC 5
  3. ONDANSETRON [Concomitant]

REACTIONS (3)
  - ATRIAL FLUTTER [None]
  - INFUSION RELATED REACTION [None]
  - RESPIRATORY DISTRESS [None]
